FAERS Safety Report 22377242 (Version 1)
Quarter: 2023Q2

REPORT INFORMATION
  Report Type: Report from Study
  Country: US (occurrence: US)
  Receive Date: 20230529
  Receipt Date: 20230529
  Transmission Date: 20230722
  Serious: No
  Sender: FDA-Public Use
  Company Number: US-ACADIA PHARMACEUTICALS INC.-ACA-2023-PIM-001728

PATIENT
  Age: 72 Year
  Sex: Male

DRUGS (15)
  1. NUPLAZID [Suspect]
     Active Substance: PIMAVANSERIN TARTRATE
     Indication: Hallucination
     Dosage: 34 MILLIGRAM, QD
     Route: 048
     Dates: start: 20220630, end: 20230501
  2. NUPLAZID [Suspect]
     Active Substance: PIMAVANSERIN TARTRATE
     Indication: Delusion
  3. NEBIVOLOL [Concomitant]
     Active Substance: NEBIVOLOL
  4. ROPINIROLE [Concomitant]
     Active Substance: ROPINIROLE
  5. POTASSIUM CHLORIDE [Concomitant]
     Active Substance: POTASSIUM CHLORIDE
  6. DULOXETINE [Concomitant]
     Active Substance: DULOXETINE
  7. TRAZODONE [Concomitant]
     Active Substance: TRAZODONE HYDROCHLORIDE
  8. NORCO [Concomitant]
     Active Substance: ACETAMINOPHEN\HYDROCODONE BITARTRATE
  9. METOLAZONE [Concomitant]
     Active Substance: METOLAZONE
  10. BASAGLAR [Concomitant]
     Active Substance: INSULIN GLARGINE
  11. CYCLOBENZAPRINE [Concomitant]
     Active Substance: CYCLOBENZAPRINE
  12. LORAZEPAM [Concomitant]
     Active Substance: LORAZEPAM
  13. TRAMADOL [Concomitant]
     Active Substance: TRAMADOL
  14. NOVOLOG [Concomitant]
     Active Substance: INSULIN ASPART
  15. CLONIDINE [Concomitant]
     Active Substance: CLONIDINE

REACTIONS (1)
  - Off label use [Unknown]

NARRATIVE: CASE EVENT DATE: 20220630
